FAERS Safety Report 7751519-7 (Version None)
Quarter: 2011Q3

REPORT INFORMATION
  Report Type: 
  Country: None (occurrence: None)
  Receive Date: 20110914
  Receipt Date: 20110908
  Transmission Date: 20111222
  Serious: Yes (Hospitalization)
  Sender: FDA-Public Use
  Company Number: PHEH2011US03717

PATIENT
  Sex: Female

DRUGS (2)
  1. EXJADE [Suspect]
     Indication: CHRONIC LYMPHOCYTIC LEUKAEMIA
     Dosage: 1675 MG, DAILY
     Route: 048
     Dates: start: 20110719
  2. EXJADE [Suspect]
     Indication: HAEMOCHROMATOSIS

REACTIONS (1)
  - BLOOD PRESSURE DECREASED [None]
